FAERS Safety Report 18126625 (Version 10)
Quarter: 2024Q2

REPORT INFORMATION
  Report Type: Report from Study
  Country: BR (occurrence: BR)
  Receive Date: 20200809
  Receipt Date: 20240419
  Transmission Date: 20240715
  Serious: Yes (Other)
  Sender: FDA-Public Use
  Company Number: PHHY2018BR130886

PATIENT
  Age: 42 Year
  Sex: Male
  Weight: 80 kg

DRUGS (14)
  1. COSENTYX [Suspect]
     Active Substance: SECUKINUMAB
     Indication: Psoriatic arthropathy
     Dosage: 300 MG, QMO
     Route: 058
     Dates: start: 20180723
  2. COSENTYX [Suspect]
     Active Substance: SECUKINUMAB
     Dosage: UNK
     Route: 058
     Dates: start: 20180930
  3. COSENTYX [Suspect]
     Active Substance: SECUKINUMAB
     Dosage: UNK
     Route: 065
     Dates: start: 201905
  4. COSENTYX [Suspect]
     Active Substance: SECUKINUMAB
     Dosage: UNK
     Route: 065
     Dates: start: 20190602
  5. COSENTYX [Suspect]
     Active Substance: SECUKINUMAB
     Dosage: 300 MG
     Route: 065
     Dates: start: 20200622
  6. COSENTYX [Suspect]
     Active Substance: SECUKINUMAB
     Dosage: UNK
     Route: 065
     Dates: start: 20210723
  7. COSENTYX [Suspect]
     Active Substance: SECUKINUMAB
     Dosage: UNK
     Route: 065
     Dates: start: 20210823
  8. COSENTYX [Suspect]
     Active Substance: SECUKINUMAB
     Dosage: UNK
     Route: 065
     Dates: start: 20220520
  9. COSENTYX [Suspect]
     Active Substance: SECUKINUMAB
     Dosage: UNK
     Route: 065
     Dates: start: 20220620
  10. COSENTYX [Suspect]
     Active Substance: SECUKINUMAB
     Dosage: UNK
     Route: 065
     Dates: start: 20221019
  11. ADALIMUMAB [Suspect]
     Active Substance: ADALIMUMAB\ISOPROPYL ALCOHOL
     Indication: Psoriatic arthropathy
     Dosage: UNK
     Route: 065
  12. AZULFIDINE [Concomitant]
     Active Substance: SULFASALAZINE
     Indication: Product used for unknown indication
     Dosage: 500 MG
     Route: 065
  13. HUMIRA [Concomitant]
     Active Substance: ADALIMUMAB
     Indication: Product used for unknown indication
     Dosage: UNK
     Route: 065
  14. SULFASALAZINE [Concomitant]
     Active Substance: SULFASALAZINE
     Indication: Psoriatic arthropathy
     Dosage: 500 MG, QD
     Route: 065

REACTIONS (52)
  - Herpes ophthalmic [Recovered/Resolved]
  - Ulcerative keratitis [Recovered/Resolved]
  - Polyarthritis [Unknown]
  - Paralysis [Recovered/Resolved]
  - Psoriatic arthropathy [Not Recovered/Not Resolved]
  - Pain [Unknown]
  - Joint swelling [Not Recovered/Not Resolved]
  - Arthritis [Recovered/Resolved]
  - Arthritis [Not Recovered/Not Resolved]
  - Inflammation [Not Recovered/Not Resolved]
  - Gait inability [Recovered/Resolved]
  - Back pain [Not Recovered/Not Resolved]
  - Neck pain [Recovering/Resolving]
  - Skin discolouration [Recovered/Resolved]
  - Arthralgia [Unknown]
  - Musculoskeletal stiffness [Recovered/Resolved]
  - Peripheral swelling [Not Recovered/Not Resolved]
  - Joint range of motion decreased [Recovered/Resolved]
  - Herpes zoster [Recovered/Resolved]
  - Asthenia [Unknown]
  - Herpes zoster [Not Recovered/Not Resolved]
  - Decreased immune responsiveness [Unknown]
  - Malaise [Not Recovered/Not Resolved]
  - Varicella [Unknown]
  - Costochondritis [Unknown]
  - Sleep disorder [Unknown]
  - Dyspnoea [Unknown]
  - Osteitis [Unknown]
  - Corneal disorder [Unknown]
  - Tremor [Unknown]
  - Paraesthesia [Recovering/Resolving]
  - Blepharitis [Not Recovered/Not Resolved]
  - Skin disorder [Unknown]
  - Dermatitis [Not Recovered/Not Resolved]
  - Spinal pain [Unknown]
  - Eye disorder [Unknown]
  - Ear inflammation [Not Recovered/Not Resolved]
  - Psoriasis [Unknown]
  - Device mechanical issue [Recovered/Resolved]
  - Incorrect dose administered [Unknown]
  - Toothache [Unknown]
  - Sacroiliitis [Unknown]
  - Musculoskeletal stiffness [Not Recovered/Not Resolved]
  - Muscular weakness [Not Recovered/Not Resolved]
  - Foot deformity [Not Recovered/Not Resolved]
  - Hypokinesia [Not Recovered/Not Resolved]
  - Therapeutic product effect incomplete [Unknown]
  - Drug ineffective [Not Recovered/Not Resolved]
  - Device issue [Unknown]
  - Skin discolouration [Recovered/Resolved]
  - Bedridden [Recovered/Resolved]
  - Clinodactyly [Unknown]

NARRATIVE: CASE EVENT DATE: 20180930
